FAERS Safety Report 23952409 (Version 8)
Quarter: 2024Q3

REPORT INFORMATION
  Report Type: Report from Study
  Country: JP (occurrence: JP)
  Receive Date: 20240607
  Receipt Date: 20240913
  Transmission Date: 20241017
  Serious: Yes (Death, Hospitalization, Other)
  Sender: APELLIS PHARMACEUTICALS
  Company Number: JP-BIOVITRUM-2024-JP-005690

PATIENT
  Weight: 58 kg

DRUGS (11)
  1. EMPAVELI [Suspect]
     Active Substance: PEGCETACOPLAN
     Indication: Paroxysmal nocturnal haemoglobinuria
     Dosage: TWICE
     Route: 058
     Dates: start: 20240201, end: 20240522
  2. EMPAVELI [Suspect]
     Active Substance: PEGCETACOPLAN
     Dosage: ADMINISTERED AT 1080 MG, TWICE/WEEK.
     Route: 058
     Dates: start: 20240523, end: 20240605
  3. EMPAVELI [Suspect]
     Active Substance: PEGCETACOPLAN
     Dosage: 1080.000MG BIW
     Route: 058
     Dates: start: 20240606, end: 20240619
  4. CYCLOSPORINE [Suspect]
     Active Substance: CYCLOSPORINE
     Indication: Paroxysmal nocturnal haemoglobinuria
     Dosage: 40.000MG
     Route: 048
     Dates: start: 20240402
  5. PREDNISOLONE [Concomitant]
     Active Substance: PREDNISOLONE
     Indication: Product used for unknown indication
  6. MIYA-BM [Concomitant]
     Active Substance: CLOSTRIDIUM BUTYRICUM SPORES STRAIN M-55
     Indication: Product used for unknown indication
  7. PREDNISOLONE [Concomitant]
     Active Substance: PREDNISOLONE
     Indication: Paroxysmal nocturnal haemoglobinuria
     Dosage: 20.000MG
     Route: 048
     Dates: start: 20240607
  8. CEFTRIAXONE SODIUM [Concomitant]
     Active Substance: CEFTRIAXONE SODIUM
     Indication: Product used for unknown indication
  9. SOLU-MEDROL [Concomitant]
     Active Substance: METHYLPREDNISOLONE SODIUM SUCCINATE
     Indication: Paroxysmal nocturnal haemoglobinuria
     Dosage: 500.000MG
     Dates: start: 20240608, end: 20240610
  10. SOLU-MEDROL [Concomitant]
     Active Substance: METHYLPREDNISOLONE SODIUM SUCCINATE
     Dosage: 250.000MG
     Dates: start: 20240611, end: 20240612
  11. PREDNISOLONE SODIUM SUCCINATE [Concomitant]
     Active Substance: PREDNISOLONE SODIUM SUCCINATE
     Indication: Paroxysmal nocturnal haemoglobinuria
     Dosage: 50.000MG
     Dates: start: 20240613, end: 20240618

REACTIONS (11)
  - Sepsis [Fatal]
  - Paroxysmal nocturnal haemoglobinuria [Fatal]
  - Condition aggravated [Fatal]
  - Dehydration [Fatal]
  - Acute kidney injury [Unknown]
  - Enteritis [Unknown]
  - Renal impairment [Unknown]
  - Multiple organ dysfunction syndrome [Fatal]
  - Haemoglobin decreased [Unknown]
  - General physical health deterioration [Unknown]
  - Anaemia [Unknown]

NARRATIVE: CASE EVENT DATE: 20240301
